FAERS Safety Report 6844781-6 (Version None)
Quarter: 2010Q3

REPORT INFORMATION
  Report Type: 
  Country: None (occurrence: None)
  Receive Date: 20100715
  Receipt Date: 20100707
  Transmission Date: 20110219
  Serious: Yes (Hospitalization)
  Sender: FDA-Public Use
  Company Number: US-WYE-H16041810

PATIENT
  Sex: Male

DRUGS (4)
  1. PRISTIQ [Suspect]
  2. NALTREXONE [Concomitant]
     Dosage: UNKNOWN
  3. ATENOLOL [Concomitant]
     Dosage: UNKNOWN
  4. DOXYCYCLINE [Concomitant]
     Dosage: UNKNOWN

REACTIONS (2)
  - MEDICATION RESIDUE [None]
  - RECTAL CANCER [None]
